FAERS Safety Report 9900754 (Version 2)
Quarter: 2014Q1

REPORT INFORMATION
  Report Type: Spontaneous
  Country: MA (occurrence: MA)
  Receive Date: 20140217
  Receipt Date: 20140224
  Transmission Date: 20141002
  Serious: Yes (Hospitalization, Other)
  Sender: FDA-Public Use
  Company Number: MA-ROCHE-1350368

PATIENT
  Sex: Female

DRUGS (5)
  1. MABTHERA [Suspect]
     Indication: B-CELL LYMPHOMA
     Route: 065
     Dates: start: 201401, end: 201401
  2. CYCLOPHOSPHAMIDE [Concomitant]
  3. PREDNISOLONE [Concomitant]
  4. VINCRISTINE [Concomitant]
  5. DOXORUBICIN [Concomitant]

REACTIONS (2)
  - Encephalitis [Recovered/Resolved]
  - Blindness [Recovered/Resolved]
